FAERS Safety Report 5232389-8 (Version None)
Quarter: 2007Q1

REPORT INFORMATION
  Report Type: 
  Country: None (occurrence: None)
  Receive Date: 20070207
  Receipt Date: 20070128
  Transmission Date: 20070707
  Serious: Yes (Other)
  Sender: FDA-Public Use
  Company Number: PHRM2007DZ00666

PATIENT
  Age: 58 Year
  Sex: Female

DRUGS (1)
  1. LESCOL [Suspect]
     Route: 048

REACTIONS (2)
  - NEPHROTIC SYNDROME [None]
  - PROTEIN URINE PRESENT [None]
